FAERS Safety Report 24810692 (Version 1)
Quarter: 2025Q1

REPORT INFORMATION
  Report Type: Spontaneous
  Country: US (occurrence: US)
  Receive Date: 20250106
  Receipt Date: 20250106
  Transmission Date: 20250408
  Serious: Yes (Other)
  Sender: BRISTOL-MYERS SQUIBB COMPANY
  Company Number: US-BRISTOL-MYERS SQUIBB COMPANY-2025-001651

PATIENT
  Age: 95 Year

DRUGS (1)
  1. ELIQUIS [Suspect]
     Active Substance: APIXABAN
     Indication: Product used for unknown indication
     Route: 048

REACTIONS (4)
  - Dyspnoea [Unknown]
  - Atrial fibrillation [Unknown]
  - Essential hypertension [Unknown]
  - Acquired mixed hyperlipidaemia [Unknown]

NARRATIVE: CASE EVENT DATE: 20241217
